FAERS Safety Report 7973740-5 (Version None)
Quarter: 2011Q4

REPORT INFORMATION
  Report Type: 
  Country: None (occurrence: None)
  Receive Date: 20111125
  Receipt Date: 20110628
  Transmission Date: 20120403
  Serious: Yes (Other)
  Sender: FDA-Public Use
  Company Number: ALL1-2011-02080

PATIENT
  Sex: Male

DRUGS (1)
  1. CARBATROL [Suspect]
     Indication: CONVULSION
     Dosage: 200 MG, ORAL
     Route: 048

REACTIONS (3)
  - CONVULSION [None]
  - PRODUCT QUALITY ISSUE [None]
  - DRUG LEVEL BELOW THERAPEUTIC [None]
